FAERS Safety Report 17649235 (Version 1)
Quarter: 2020Q2

REPORT INFORMATION
  Report Type: Spontaneous
  Country: CA (occurrence: CA)
  Receive Date: 20200409
  Receipt Date: 20200409
  Transmission Date: 20200713
  Serious: Yes (Other)
  Sender: FDA-Public Use
  Company Number: CA-TEVA-2020-CA-1219754

PATIENT
  Sex: Female

DRUGS (2)
  1. DILTIAZEM. [Concomitant]
     Active Substance: DILTIAZEM
  2. GABAPENTIN. [Suspect]
     Active Substance: GABAPENTIN
     Indication: NEURALGIA
     Route: 065

REACTIONS (2)
  - Dyspnoea [Not Recovered/Not Resolved]
  - Choking [Not Recovered/Not Resolved]
